FAERS Safety Report 4272946-9 (Version None)
Quarter: 2004Q1

REPORT INFORMATION
  Report Type: 
  Country: None (occurrence: None)
  Receive Date: 20040116
  Receipt Date: 20031127
  Transmission Date: 20041129
  Serious: Yes (Other)
  Sender: FDA-Public Use
  Company Number: FR-BRISTOL-MYERS SQUIBB COMPANY-12444816

PATIENT
  Age: 54 Year
  Sex: Female

DRUGS (5)
  1. APROVEL TABS [Suspect]
     Indication: HYPERTENSION
     Route: 048
     Dates: start: 20030701, end: 20031016
  2. SECTRAL [Concomitant]
  3. LAROXYL [Concomitant]
  4. XANAX [Concomitant]
  5. IMOVANE [Concomitant]

REACTIONS (3)
  - HYPERSENSITIVITY [None]
  - IMMUNE SYSTEM DISORDER [None]
  - LEUKOCYTOCLASTIC VASCULITIS [None]
